FAERS Safety Report 4626716-X (Version None)
Quarter: 2005Q2

REPORT INFORMATION
  Report Type: 
  Country: None (occurrence: None)
  Receive Date: 20050405
  Receipt Date: 20050225
  Transmission Date: 20051028
  Serious: Yes (Other)
  Sender: FDA-Public Use
  Company Number: PHBS2005JP03067

PATIENT
  Age: 62 Year
  Sex: Male

DRUGS (3)
  1. LAMISIL [Suspect]
     Indication: NAIL TINEA
     Dosage: 125 MG, QD
     Route: 048
     Dates: start: 20050212, end: 20050219
  2. LAMISIL [Suspect]
     Dosage: 125 MG, BID
     Route: 048
     Dates: start: 20050221, end: 20050221
  3. ASTAT [Concomitant]
     Indication: TINEA PEDIS
     Dosage: 0.5 G/DAY
     Route: 061
     Dates: start: 20050212, end: 20050221

REACTIONS (5)
  - COLD SWEAT [None]
  - DIARRHOEA [None]
  - DIZZINESS [None]
  - NAUSEA [None]
  - SYNCOPE [None]
